FAERS Safety Report 8309912-X (Version None)
Quarter: 2012Q2

REPORT INFORMATION
  Report Type: 
  Country: None (occurrence: None)
  Receive Date: 20120425
  Receipt Date: 20120418
  Transmission Date: 20120825
  Serious: Yes (Hospitalization, Other)
  Sender: FDA-Public Use
  Company Number: SE-PFIZER INC-2012095756

PATIENT
  Age: 58 Year
  Sex: Male

DRUGS (1)
  1. CAVERJECT [Suspect]
     Dosage: 5 UG, SINGLE
     Dates: start: 20111127

REACTIONS (2)
  - PRIAPISM [None]
  - URINARY RETENTION [None]
